FAERS Safety Report 7755163-7 (Version None)
Quarter: 2011Q3

REPORT INFORMATION
  Report Type: 
  Country: None (occurrence: None)
  Receive Date: 20110916
  Receipt Date: 20110912
  Transmission Date: 20111222
  Serious: Yes (Other)
  Sender: FDA-Public Use
  Company Number: US-PFIZER INC-2011167316

PATIENT
  Sex: Male

DRUGS (2)
  1. SUTENT [Suspect]
     Indication: METASTATIC RENAL CELL CARCINOMA
     Dosage: 50 MG, 1X/DAY
     Route: 048
     Dates: start: 20110703, end: 20110720
  2. SUTENT [Suspect]
     Dosage: 37.5 MG, 1X/DAY
     Dates: start: 20110817

REACTIONS (4)
  - FATIGUE [None]
  - BLOOD PRESSURE INCREASED [None]
  - DYSPNOEA [None]
  - PLATELET COUNT DECREASED [None]
